FAERS Safety Report 14524670 (Version 1)
Quarter: 2018Q1

REPORT INFORMATION
  Report Type: Spontaneous
  Country: PL (occurrence: PL)
  Receive Date: 20180213
  Receipt Date: 20180213
  Transmission Date: 20180509
  Serious: Yes (Death)
  Sender: FDA-Public Use
  Company Number: PL-CIPLA LTD.-2018PL04099

PATIENT

DRUGS (1)
  1. CARBOPLATIN. [Suspect]
     Active Substance: CARBOPLATIN
     Indication: OVARIAN CANCER
     Dosage: 507 MG, UNK
     Route: 042
     Dates: start: 20171130, end: 20171130

REACTIONS (8)
  - Tremor [Fatal]
  - Blood pressure increased [Fatal]
  - Cardiac arrest [Fatal]
  - Nausea [Fatal]
  - Loss of consciousness [Fatal]
  - Vomiting [Fatal]
  - Dysuria [Fatal]
  - Heart rate increased [Fatal]

NARRATIVE: CASE EVENT DATE: 20171130
